FAERS Safety Report 20085330 (Version 1)
Quarter: 2021Q4

REPORT INFORMATION
  Report Type: Spontaneous
  Country: KR (occurrence: KR)
  Receive Date: 20211118
  Receipt Date: 20211118
  Transmission Date: 20220304
  Serious: Yes (Other)
  Sender: FDA-Public Use
  Company Number: KR-002147023-NVSC2021KR258335

PATIENT
  Age: 68 Year
  Sex: Male

DRUGS (1)
  1. LUCENTIS [Suspect]
     Active Substance: RANIBIZUMAB
     Indication: Product used for unknown indication
     Route: 031

REACTIONS (3)
  - Subretinal fluid [Unknown]
  - Visual acuity reduced [Unknown]
  - Posterior capsule opacification [Unknown]
